FAERS Safety Report 7705283-8 (Version None)
Quarter: 2011Q3

REPORT INFORMATION
  Report Type: 
  Country: None (occurrence: None)
  Receive Date: 20110822
  Receipt Date: 20110822
  Transmission Date: 20111222
  Serious: Yes (Other)
  Sender: FDA-Public Use
  Company Number: None

PATIENT
  Sex: Female

DRUGS (2)
  1. LEVETIRACETAM [Suspect]
     Dosage: 120 2 PO BID PO
     Route: 048
     Dates: start: 20090401, end: 20090701
  2. LEVETIRACETAM [Suspect]
     Dosage: 120 2 PO BID PO
     Route: 048
     Dates: start: 20020101, end: 20090401

REACTIONS (2)
  - PRODUCT SUBSTITUTION ISSUE [None]
  - CONVULSION [None]
